FAERS Safety Report 8391306-2 (Version None)
Quarter: 2012Q2

REPORT INFORMATION
  Report Type: 
  Country: None (occurrence: None)
  Receive Date: 20120529
  Receipt Date: 20120410
  Transmission Date: 20120825
  Serious: No
  Sender: FDA-Public Use
  Company Number: US-ABBOTT-12P-163-0923826-00

PATIENT
  Sex: Male
  Weight: 64.922 kg

DRUGS (1)
  1. ZEMPLAR [Suspect]
     Indication: HYPERPARATHYROIDISM SECONDARY
     Route: 048
     Dates: start: 20120201, end: 20120301

REACTIONS (4)
  - EYE PAIN [None]
  - HEADACHE [None]
  - PHOTOPHOBIA [None]
  - LACRIMATION INCREASED [None]
